FAERS Safety Report 5074797-4 (Version None)
Quarter: 2006Q3

REPORT INFORMATION
  Report Type: 
  Country: None (occurrence: None)
  Receive Date: 20060804
  Receipt Date: 20060727
  Transmission Date: 20061208
  Serious: Yes (Other)
  Sender: FDA-Public Use
  Company Number: 2006BI010619

PATIENT
  Age: 40 Year
  Sex: Female
  Weight: 99.3377 kg

DRUGS (1)
  1. AVONEX [Suspect]
     Indication: MULTIPLE SCLEROSIS
     Dosage: 30  UG; QW; IM
     Route: 030
     Dates: start: 20050801

REACTIONS (4)
  - BLINDNESS UNILATERAL [None]
  - DEAFNESS [None]
  - EPILEPSY [None]
  - MUSCULAR WEAKNESS [None]
